FAERS Safety Report 10794277 (Version 1)
Quarter: 2015Q1

REPORT INFORMATION
  Report Type: Spontaneous
  Country: JP (occurrence: JP)
  Receive Date: 20150213
  Receipt Date: 20150213
  Transmission Date: 20150721
  Serious: Yes (Other)
  Sender: FDA-Public Use
  Company Number: JP-GILEAD-2015-0132934

PATIENT
  Age: 71 Year
  Sex: Female

DRUGS (2)
  1. TENOFOVIR DISOPROXIL FUMARATE [Suspect]
     Active Substance: TENOFOVIR DISOPROXIL FUMARATE
     Indication: CHRONIC HEPATITIS B
     Dosage: 300 MG, QD
     Route: 048
     Dates: start: 20141209, end: 20141215
  2. CELECOX [Concomitant]
     Active Substance: CELECOXIB

REACTIONS (5)
  - Erythema [Recovered/Resolved]
  - Oedema [Recovered/Resolved]
  - Erythema multiforme [Recovering/Resolving]
  - Conjunctival haemorrhage [Unknown]
  - Lip erosion [Unknown]

NARRATIVE: CASE EVENT DATE: 20141212
